FAERS Safety Report 25812434 (Version 4)
Quarter: 2025Q4

REPORT INFORMATION
  Report Type: Spontaneous
  Country: US (occurrence: US)
  Receive Date: 20250917
  Receipt Date: 20251030
  Transmission Date: 20260118
  Serious: No
  Sender: UNITED THERAPEUTICS
  Company Number: US-UNITED THERAPEUTICS-UNT-2025-031435

PATIENT
  Age: 45 Year
  Sex: Female
  Weight: 64.399 kg

DRUGS (8)
  1. REMODULIN [Suspect]
     Active Substance: TREPROSTINIL
     Indication: Pulmonary arterial hypertension
     Dosage: 0.025 ?G/KG (SELF FILL WITH 1.9 ML/CASSETTE, RATE OF 20 MCL/HOUR), CONTINUING
  2. REMODULIN [Suspect]
     Active Substance: TREPROSTINIL
     Dosage: 0.039 ?G/KG (SELF FILL WITH 2.8 ML/CASSETTE, RATE OF 32 MCL/HOUR), CONTINUING
  3. REMODULIN [Suspect]
     Active Substance: TREPROSTINIL
     Dosage: UNK, CONTINUING
  4. IBUPROFEN [Suspect]
     Active Substance: IBUPROFEN
     Indication: Infusion site pain
  5. TYLENOL [Suspect]
     Active Substance: ACETAMINOPHEN
     Indication: Infusion site pain
  6. LECITHIN\POLOXAMER 407 [Suspect]
     Active Substance: LECITHIN\POLOXAMER 407
     Indication: Infusion site pain
  7. MACITENTAN\TADALAFIL [Concomitant]
     Active Substance: MACITENTAN\TADALAFIL
     Indication: Product used for unknown indication
  8. FUROSEMIDE [Concomitant]
     Active Substance: FUROSEMIDE
     Indication: Product used for unknown indication

REACTIONS (7)
  - Infusion site erythema [Not Recovered/Not Resolved]
  - Infusion site pain [Not Recovered/Not Resolved]
  - Bone contusion [Not Recovered/Not Resolved]
  - Therapy non-responder [Unknown]
  - Device difficult to use [Unknown]
  - Medical device site hyperhidrosis [Not Recovered/Not Resolved]
  - Infusion site vesicles [Recovered/Resolved]

NARRATIVE: CASE EVENT DATE: 20250901
